FAERS Safety Report 7480377-3 (Version None)
Quarter: 2011Q2

REPORT INFORMATION
  Report Type: 
  Country: None (occurrence: None)
  Receive Date: 20110504
  Receipt Date: 20110422
  Transmission Date: 20111010
  Serious: Yes (Hospitalization)
  Sender: FDA-Public Use
  Company Number: ACO_23603_2011

PATIENT
  Age: 56 Year
  Sex: Male

DRUGS (11)
  1. AMPYRA [Suspect]
  2. LANTUS [Concomitant]
  3. WARFARIN (WARFARIN) [Concomitant]
  4. NITROFURANTOIN [Concomitant]
  5. BETASERON [Concomitant]
  6. CITALOPRAM HYDROBROMIDE [Concomitant]
  7. AMPYRA [Suspect]
  8. DIOVAN HCT [Concomitant]
  9. AMPYRA [Suspect]
     Indication: PRODUCT USED FOR UNKNOWN INDICATION
     Dosage: 10 MG, BID, ORAL
     Route: 048
     Dates: start: 20100628
  10. METFORMIN (METFORMIN) [Concomitant]
  11. PROMETHAZINE [Concomitant]

REACTIONS (2)
  - URINARY TRACT INFECTION [None]
  - KIDNEY INFECTION [None]
